FAERS Safety Report 4669959-1 (Version None)
Quarter: 2005Q2

REPORT INFORMATION
  Report Type: 
  Country: None (occurrence: None)
  Receive Date: 20050520
  Receipt Date: 20050512
  Transmission Date: 20051028
  Serious: Yes (Death)
  Sender: FDA-Public Use
  Company Number: 2005038082

PATIENT
  Age: 75 Year
  Sex: Male

DRUGS (18)
  1. TIKOSYN [Suspect]
     Indication: CARDIAC DISORDER
     Dosage: 500 MCG (250 MCG, TWICE DAILY), ORAL
     Route: 048
     Dates: start: 20040820
  2. COMPAZINE [Concomitant]
  3. NITROSTAT [Concomitant]
  4. ZESTRIL [Concomitant]
  5. ALLOPURINOL [Concomitant]
  6. COREG [Concomitant]
  7. PLAVIX [Concomitant]
  8. LANOXIN [Concomitant]
  9. LASIX [Concomitant]
  10. ZAROXOLYN [Concomitant]
  11. ALDACTONE [Concomitant]
  12. PROTONIX [Concomitant]
  13. ZOCOR [Concomitant]
  14. EPOGEN [Concomitant]
  15. INSULIN [Concomitant]
  16. NIFEREX (POLYSACCHARIDE-IRON COMPLEX) [Concomitant]
  17. PAXIL [Concomitant]
  18. COUMADIN [Concomitant]

REACTIONS (1)
  - DEATH [None]
